FAERS Safety Report 4878334-6 (Version None)
Quarter: 2006Q1

REPORT INFORMATION
  Report Type: 
  Country: None (occurrence: None)
  Receive Date: 20060111
  Receipt Date: 20051010
  Transmission Date: 20060701
  Serious: Yes (Hospitalization, Disabling)
  Sender: FDA-Public Use
  Company Number: US-MERCK-0510USA06254

PATIENT
  Age: 67 Year
  Sex: Female
  Weight: 73 kg

DRUGS (20)
  1. VIOXX [Suspect]
     Indication: PAIN
     Route: 048
     Dates: start: 19990101, end: 20040801
  2. VIOXX [Suspect]
     Indication: ARTHRITIS
     Route: 048
     Dates: start: 19990101, end: 20040801
  3. ACETAMINOPHEN W/ CODEINE NO. 3 [Concomitant]
     Route: 065
  4. AMITRIPTYLINE HYDROCHLORIDE [Concomitant]
     Route: 065
  5. AMOXICILLIN [Concomitant]
     Route: 065
  6. BIAXIN [Concomitant]
     Route: 065
  7. DIPHENHYDRAMINE HYDROCHLORIDE [Concomitant]
     Route: 065
  8. DIOVAN [Concomitant]
     Route: 065
  9. FAMVIR [Concomitant]
     Route: 065
  10. GLUCOVANCE [Concomitant]
     Route: 065
  11. GLYBURIDE [Concomitant]
     Route: 065
  12. HUMULIN [Concomitant]
     Route: 065
  13. IBUPROFEN [Concomitant]
     Route: 065
  14. LOTREL [Concomitant]
     Route: 065
  15. PLAVIX [Concomitant]
     Route: 065
  16. PRAVACHOL [Concomitant]
     Route: 065
  17. PREMARIN [Concomitant]
     Route: 065
  18. PROMETHAZINE [Concomitant]
     Route: 065
  19. STARLIX [Concomitant]
     Route: 065
  20. TOPROL-XL [Concomitant]
     Route: 065

REACTIONS (20)
  - ACUTE MYOCARDIAL INFARCTION [None]
  - ADVERSE DRUG REACTION [None]
  - APHTHOUS STOMATITIS [None]
  - ASTHENIA [None]
  - CARDIOVASCULAR DISORDER [None]
  - CATARACT [None]
  - CLOSTRIDIUM COLITIS [None]
  - CORONARY ARTERY DISEASE [None]
  - DEHYDRATION [None]
  - DIABETES MELLITUS INSULIN-DEPENDENT [None]
  - DIZZINESS [None]
  - GASTROENTERITIS [None]
  - HAEMORRHOIDS [None]
  - HYPERTENSION [None]
  - HYPOKALAEMIA [None]
  - HYPONATRAEMIA [None]
  - MENISCUS LESION [None]
  - MYALGIA [None]
  - OSTEOARTHRITIS [None]
  - UPPER RESPIRATORY TRACT INFECTION [None]
